FAERS Safety Report 5241853-7 (Version None)
Quarter: 2007Q1

REPORT INFORMATION
  Report Type: 
  Country: None (occurrence: None)
  Receive Date: 20070220
  Receipt Date: 20070208
  Transmission Date: 20070707
  Serious: Yes (Other)
  Sender: FDA-Public Use
  Company Number: FR-BRISTOL-MYERS SQUIBB COMPANY-13677083

PATIENT
  Age: 1 Day
  Sex: Male
  Weight: 4 kg

DRUGS (5)
  1. REYATAZ [Suspect]
     Indication: HIV INFECTION
     Route: 064
     Dates: start: 20060627, end: 20060912
  2. NORVIR [Concomitant]
     Indication: HIV INFECTION
     Route: 064
     Dates: start: 20060627, end: 20070112
  3. COMBIVIR [Concomitant]
     Route: 064
     Dates: start: 20060627, end: 20070112
  4. SAQUINAVIR [Concomitant]
     Route: 064
     Dates: start: 20060912, end: 20070112
  5. QUININE [Concomitant]
     Indication: MALARIA
     Dosage: 03-AUG-06 TO 07-AUG-06 THEN DOSED AGAIN AFTER 07-AUG-2006 500 MG (ROUTE UNKNOWN) 3 TIMES/DAY
     Route: 064
     Dates: start: 20060803, end: 20060801

REACTIONS (1)
  - FOETAL DISORDER [None]
